FAERS Safety Report 4528079-7 (Version None)
Quarter: 2004Q4

REPORT INFORMATION
  Report Type: 
  Country: None (occurrence: None)
  Receive Date: 20041124
  Receipt Date: 20040927
  Transmission Date: 20050328
  Serious: Yes (Hospitalization, Other)
  Sender: FDA-Public Use
  Company Number: 2004071314

PATIENT
  Age: 75 Year
  Sex: Male
  Weight: 79.3795 kg

DRUGS (10)
  1. TIKOSYN [Suspect]
     Indication: ATRIAL FIBRILLATION
     Dosage: 1000 MCG (500 MCG, 2 IN 1 D), ORAL
     Route: 048
     Dates: start: 20040817
  2. VALSARTAN (VALSARTAN) [Concomitant]
  3. ASPIRIN [Concomitant]
  4. CLOPIDOGREL BISULFATE [Concomitant]
  5. FUROSEMIDE [Concomitant]
  6. PANTOPRAZOLE (PANTOPRAZOLE) [Concomitant]
  7. ATORVASTATIN (ATORVASTATIN) [Concomitant]
  8. EZETIMIBE (EZETIMIBE) [Concomitant]
  9. ALPRAZOLAM [Concomitant]
  10. CARVEDILOL [Concomitant]

REACTIONS (8)
  - ATRIAL FIBRILLATION [None]
  - CHEST PAIN [None]
  - DYSPEPSIA [None]
  - ERUCTATION [None]
  - MARKEDLY REDUCED DIETARY INTAKE [None]
  - NAUSEA [None]
  - PANIC ATTACK [None]
  - WEIGHT DECREASED [None]
